FAERS Safety Report 9868616 (Version 3)
Quarter: 2014Q4

REPORT INFORMATION
  Report Type: Spontaneous
  Country: US (occurrence: US)
  Receive Date: 20140204
  Receipt Date: 20141008
  Transmission Date: 20150529
  Serious: Yes (Hospitalization)
  Sender: FDA-Public Use
  Company Number: US-009507513-1402USA001300

PATIENT
  Sex: Female

DRUGS (3)
  1. CYTOMEL [Concomitant]
     Active Substance: LIOTHYRONINE SODIUM
     Indication: URTICARIA CHRONIC
     Dosage: 5 MICROGRAM, QD
  2. NUVARING [Suspect]
     Active Substance: ETHINYL ESTRADIOL\ETONOGESTREL
     Indication: VAGINAL HAEMORRHAGE
     Dosage: UNK
     Route: 067
     Dates: start: 200701, end: 20070331
  3. CYCLOSPORINE. [Concomitant]
     Active Substance: CYCLOSPORINE
     Indication: URTICARIA CHRONIC
     Dosage: 200 MG, QD
     Route: 048

REACTIONS (5)
  - Appendicectomy [Unknown]
  - Off label use [Recovered/Resolved]
  - Blood bilirubin increased [Unknown]
  - Hypothyroidism [Unknown]
  - Deep vein thrombosis [Unknown]

NARRATIVE: CASE EVENT DATE: 200701
